FAERS Safety Report 15133379 (Version 5)
Quarter: 2019Q1

REPORT INFORMATION
  Report Type: Spontaneous
  Country: FR (occurrence: FR)
  Receive Date: 20180712
  Receipt Date: 20190116
  Transmission Date: 20190417
  Serious: Yes (Hospitalization, Other)
  Sender: FDA-Public Use
  Company Number: FR-AUROBINDO-AUR-APL-2018-033299

PATIENT
  Age: 11 Year
  Sex: Male
  Weight: 54 kg

DRUGS (11)
  1. ARIPIPRAZOLE TABLETS [Suspect]
     Active Substance: ARIPIPRAZOLE
     Indication: AGGRESSION
     Dosage: 5 MG/DAY
     Route: 065
     Dates: start: 20150917, end: 20160126
  2. LEVETIRACETAM FILM-COATED TABLET [Suspect]
     Active Substance: LEVETIRACETAM
     Dosage: 450 MILLIGRAM, TWO TIMES A DAY
     Route: 065
     Dates: start: 2008
  3. ARIPIPRAZOLE TABLETS [Suspect]
     Active Substance: ARIPIPRAZOLE
     Indication: ABNORMAL BEHAVIOUR
     Dosage: 5 MILLIGRAM, ONCE A DAY
     Route: 065
     Dates: start: 201509, end: 201601
  4. TOPIRAMATE. [Concomitant]
     Active Substance: TOPIRAMATE
     Indication: EPILEPSY
     Dosage: 50 MILLIGRAM, ONCE A DAY, 50 MG, QD
     Route: 065
     Dates: start: 201509
  5. LEVETIRACETAM. [Concomitant]
     Active Substance: LEVETIRACETAM
     Indication: SEIZURE
     Dosage: 900 MILLIGRAM, ONCE A DAY, 900 MG, BID
     Route: 065
     Dates: start: 201509
  6. LEVETIRACETAM FILM-COATED TABLET [Suspect]
     Active Substance: LEVETIRACETAM
     Indication: SEIZURE
     Dosage: 900 MILLIGRAM, TWO TIMES A DAY
     Route: 065
     Dates: start: 201509
  7. OXCARBAZEPINE. [Suspect]
     Active Substance: OXCARBAZEPINE
     Indication: SEIZURE
     Dosage: 300 MILLIGRAM, TWO TIMES A DAY,300 MG, BID
     Route: 065
     Dates: start: 2008, end: 201509
  8. RISPERIDONE. [Suspect]
     Active Substance: RISPERIDONE
     Indication: ABNORMAL BEHAVIOUR
     Dosage: 0.25 MILLIGRAM, ONCE A DAY, 0.25 MG, QD
     Route: 065
     Dates: start: 201508, end: 201509
  9. RISPERIDONE. [Suspect]
     Active Substance: RISPERIDONE
     Indication: ABNORMAL BEHAVIOUR
  10. TOPIRAMATE. [Concomitant]
     Active Substance: TOPIRAMATE
     Indication: SEIZURE
  11. LEVETIRACETAM. [Concomitant]
     Active Substance: LEVETIRACETAM
     Indication: EPILEPSY
     Dosage: 450 MILLIGRAM, TWO TIMES A DAY,  450 MG, BID
     Route: 065
     Dates: start: 2008

REACTIONS (9)
  - Glomerular filtration rate decreased [Recovered/Resolved]
  - Dysuria [Recovered/Resolved]
  - Drug ineffective [Unknown]
  - Urinary retention [Recovered/Resolved]
  - Seizure [Unknown]
  - Somnolence [Recovered/Resolved]
  - Micturition frequency decreased [Recovered/Resolved]
  - Rebound effect [Unknown]
  - Product use in unapproved indication [Unknown]

NARRATIVE: CASE EVENT DATE: 201508
